FAERS Safety Report 4681532-8 (Version None)
Quarter: 2005Q2

REPORT INFORMATION
  Report Type: 
  Country: None (occurrence: None)
  Receive Date: 20050602
  Receipt Date: 20050523
  Transmission Date: 20051028
  Serious: Yes (Hospitalization, Other)
  Sender: FDA-Public Use
  Company Number: 2005078716

PATIENT
  Age: 60 Year
  Sex: Female
  Weight: 50.8029 kg

DRUGS (2)
  1. ZYVOX [Suspect]
     Indication: WOUND INFECTION
  2. COUMADIN [Concomitant]

REACTIONS (1)
  - INTERNATIONAL NORMALISED RATIO INCREASED [None]
